FAERS Safety Report 8347797-6 (Version None)
Quarter: 2012Q2

REPORT INFORMATION
  Report Type: 
  Country: None (occurrence: None)
  Receive Date: 20120509
  Receipt Date: 20120501
  Transmission Date: 20120825
  Serious: Yes (Other)
  Sender: FDA-Public Use
  Company Number: US-GLAXOSMITHKLINE-A0966734A

PATIENT
  Sex: Female

DRUGS (1)
  1. PROMACTA [Suspect]
     Indication: PRODUCT USED FOR UNKNOWN INDICATION
     Dosage: 225MG PER DAY
     Route: 048
     Dates: start: 20120201, end: 20120211

REACTIONS (5)
  - ACCIDENTAL OVERDOSE [None]
  - VOMITING [None]
  - FATIGUE [None]
  - PLATELET DISORDER [None]
  - PLATELET COUNT DECREASED [None]
